FAERS Safety Report 7351130-6 (Version None)
Quarter: 2011Q1

REPORT INFORMATION
  Report Type: 
  Country: None (occurrence: None)
  Receive Date: 20110314
  Receipt Date: 20110304
  Transmission Date: 20110831
  Serious: Yes (Other)
  Sender: FDA-Public Use
  Company Number: GB-NAPPMUNDI-GBR-2010-0007545

PATIENT
  Sex: Female

DRUGS (4)
  1. PARACETAMOL [Suspect]
     Indication: SYMPHYSIOLYSIS
     Dosage: 1 G, UNK
  2. MST CONTINUS TABLETS 5 MG [Suspect]
     Indication: SYMPHYSIOLYSIS
     Dosage: 5 MG, BID
     Route: 048
     Dates: start: 20100922
  3. BUTRANS [Suspect]
     Indication: SYMPHYSIOLYSIS
     Dosage: 10 MCG, Q1H
     Route: 062
     Dates: start: 20101215, end: 20101229
  4. CO CODAMOL [Suspect]
     Indication: SYMPHYSIOLYSIS
     Route: 048

REACTIONS (3)
  - INTRA-UTERINE DEATH [None]
  - INADEQUATE ANALGESIA [None]
  - DRUG EXPOSURE DURING PREGNANCY [None]
